FAERS Safety Report 8229152-2 (Version None)
Quarter: 2012Q1

REPORT INFORMATION
  Report Type: 
  Country: None (occurrence: None)
  Receive Date: 20120322
  Receipt Date: 20120313
  Transmission Date: 20120608
  Serious: Yes (Death, Hospitalization)
  Sender: FDA-Public Use
  Company Number: US-JNJFOC-20120308578

PATIENT

DRUGS (9)
  1. DIURETICS [Concomitant]
     Indication: PRODUCT USED FOR UNKNOWN INDICATION
  2. NITRATES [Concomitant]
     Indication: PRODUCT USED FOR UNKNOWN INDICATION
  3. ACE INHIBITORS [Concomitant]
     Indication: PRODUCT USED FOR UNKNOWN INDICATION
  4. CLOPIDOGREL [Suspect]
     Indication: ANTIPLATELET THERAPY
     Route: 048
  5. PLACEBO [Suspect]
     Indication: ANTIPLATELET THERAPY
  6. ANTIHYPERTENSIVES [Concomitant]
     Indication: PRODUCT USED FOR UNKNOWN INDICATION
  7. STATINS [Concomitant]
     Indication: PRODUCT USED FOR UNKNOWN INDICATION
  8. ACETYLSALICYLIC ACID SRT [Suspect]
     Indication: ANTIPLATELET THERAPY
     Dosage: 75-162 MG/D
     Route: 065
  9. BETA BLOCKERS, NOS [Concomitant]
     Indication: PRODUCT USED FOR UNKNOWN INDICATION

REACTIONS (1)
  - HAEMORRHAGE [None]
